FAERS Safety Report 5360498-1 (Version None)
Quarter: 2007Q2

REPORT INFORMATION
  Report Type: 
  Country: None (occurrence: None)
  Receive Date: 20070530
  Receipt Date: 20070129
  Transmission Date: 20071010
  Serious: No
  Sender: FDA-Public Use
  Company Number: 2007PV029186

PATIENT
  Age: 63 Year
  Sex: Male

DRUGS (6)
  1. BYETTA [Suspect]
     Indication: DIABETES MELLITUS NON-INSULIN-DEPENDENT
     Dosage: 10 MCG;BID;SC 5 MCG;BID;SC
     Route: 058
     Dates: start: 20061116, end: 20070115
  2. BYETTA [Suspect]
     Indication: DIABETES MELLITUS NON-INSULIN-DEPENDENT
     Dosage: 10 MCG;BID;SC 5 MCG;BID;SC
     Route: 058
     Dates: start: 20070116
  3. AMARYL [Concomitant]
  4. METFORMIN HCL [Concomitant]
  5. PREDNISONE [Concomitant]
  6. METHOTREXATE [Concomitant]

REACTIONS (4)
  - BLOOD GLUCOSE DECREASED [None]
  - DIZZINESS [None]
  - KIDNEY INFECTION [None]
  - NAUSEA [None]
